FAERS Safety Report 18970442 (Version 1)
Quarter: 2021Q1

REPORT INFORMATION
  Report Type: Report from Study
  Country: US (occurrence: US)
  Receive Date: 20210304
  Receipt Date: 20210304
  Transmission Date: 20210420
  Serious: Yes (Hospitalization)
  Sender: FDA-Public Use
  Company Number: US-EISAI MEDICAL RESEARCH-EC-2021-088791

PATIENT
  Age: 63 Year
  Sex: Male
  Weight: 145 kg

DRUGS (13)
  1. AMLODIPINE BESYLATE AND BENAZEPRIL HYDROCHLORIDE [Concomitant]
     Active Substance: AMLODIPINE BESYLATE\BENAZEPRIL HYDROCHLORIDE
  2. LENVIMA [Suspect]
     Active Substance: LENVATINIB
     Route: 048
     Dates: start: 20200311, end: 202005
  3. LENVIMA [Suspect]
     Active Substance: LENVATINIB
     Route: 048
     Dates: start: 202005, end: 202102
  4. LENVIMA [Suspect]
     Active Substance: LENVATINIB
     Indication: RENAL CANCER
     Route: 048
     Dates: start: 20200121, end: 20200127
  5. LEVOTHYROXINE. [Concomitant]
     Active Substance: LEVOTHYROXINE
  6. CORTEF [Concomitant]
     Active Substance: HYDROCORTISONE
  7. LENVIMA [Suspect]
     Active Substance: LENVATINIB
     Route: 048
     Dates: start: 20200208, end: 2020
  8. WARFARIN [Concomitant]
     Active Substance: WARFARIN
  9. LASIX [Concomitant]
     Active Substance: FUROSEMIDE
  10. AFINITOR [Concomitant]
     Active Substance: EVEROLIMUS
  11. ELIQUIS [Concomitant]
     Active Substance: APIXABAN
  12. POTASSIUM [Concomitant]
     Active Substance: POTASSIUM
  13. HYDROCORTISONE. [Concomitant]
     Active Substance: HYDROCORTISONE

REACTIONS (5)
  - Cholecystitis infective [Not Recovered/Not Resolved]
  - Blood sodium decreased [Not Recovered/Not Resolved]
  - Ammonia increased [Not Recovered/Not Resolved]
  - Internal haemorrhage [Not Recovered/Not Resolved]
  - Metastasis [Not Recovered/Not Resolved]

NARRATIVE: CASE EVENT DATE: 202102
